FAERS Safety Report 8099220-7 (Version None)
Quarter: 2012Q1

REPORT INFORMATION
  Report Type: 
  Country: None (occurrence: None)
  Receive Date: 20120129
  Receipt Date: 20111006
  Transmission Date: 20120608
  Serious: No
  Sender: FDA-Public Use
  Company Number: US-ABBOTT-11P-163-0861276-00

PATIENT
  Sex: Female
  Weight: 95.34 kg

DRUGS (2)
  1. IRON [Concomitant]
     Indication: ANAEMIA
  2. HUMIRA [Suspect]
     Indication: PSORIASIS
     Dates: start: 20110801

REACTIONS (7)
  - DRUG EFFECT DECREASED [None]
  - ERYTHEMA [None]
  - PSORIASIS [None]
  - PRURITUS [None]
  - HAEMORRHAGE [None]
  - LACERATION [None]
  - DRY SKIN [None]
